FAERS Safety Report 7412374-8 (Version None)
Quarter: 2011Q2

REPORT INFORMATION
  Report Type: 
  Country: None (occurrence: None)
  Receive Date: 20110408
  Receipt Date: 20110408
  Transmission Date: 20111010
  Serious: Yes (Other)
  Sender: FDA-Public Use
  Company Number: None

PATIENT
  Age: 38 Year
  Sex: Male
  Weight: 60 kg

DRUGS (5)
  1. MARAVIROC [Concomitant]
  2. MARAVIROC 300MG VIIV [Suspect]
     Indication: HIV INFECTION
     Dosage: 600MG BID PO
     Route: 048
     Dates: start: 20100428, end: 20110406
  3. EFAVIRENZ [Concomitant]
  4. AMLODIPINE [Concomitant]
  5. EMTRICITABINE [Concomitant]

REACTIONS (2)
  - MORPHOEA [None]
  - BASAL CELL CARCINOMA [None]
